FAERS Safety Report 23542000 (Version 5)
Quarter: 2024Q2

REPORT INFORMATION
  Report Type: Spontaneous
  Country: CA (occurrence: CA)
  Receive Date: 20240220
  Receipt Date: 20240621
  Transmission Date: 20240715
  Serious: Yes (Hospitalization, Other)
  Sender: FDA-Public Use
  Company Number: CA-CELLTRION INC.-2024CA004038

PATIENT

DRUGS (4)
  1. INFLECTRA [Suspect]
     Active Substance: INFLIXIMAB-DYYB
     Indication: Ankylosing spondylitis
     Dosage: 350 MG, EVERY 8 WEEKS
     Route: 042
     Dates: start: 20181129
  2. INFLECTRA [Suspect]
     Active Substance: INFLIXIMAB-DYYB
     Dosage: 350 MG, EVERY 8 WEEKS
     Route: 042
     Dates: start: 20231219
  3. INFLECTRA [Suspect]
     Active Substance: INFLIXIMAB-DYYB
     Dosage: 350 MG, EVERY 8 WEEKS
     Route: 042
     Dates: start: 20231219
  4. INFLECTRA [Suspect]
     Active Substance: INFLIXIMAB-DYYB
     Dosage: 350 MG, EVERY 8 WEEKS
     Route: 042
     Dates: start: 20240229

REACTIONS (7)
  - Cerebrovascular accident [Unknown]
  - Blood magnesium decreased [Unknown]
  - Blood electrolytes decreased [Unknown]
  - Tooth infection [Not Recovered/Not Resolved]
  - Tooth infection [Unknown]
  - Tooth fracture [Unknown]
  - Toothache [Unknown]

NARRATIVE: CASE EVENT DATE: 20240101
